FAERS Safety Report 8452135-4 (Version None)
Quarter: 2012Q2

REPORT INFORMATION
  Report Type: 
  Country: None (occurrence: None)
  Receive Date: 20120620
  Receipt Date: 20120613
  Transmission Date: 20120825
  Serious: Yes (Death)
  Sender: FDA-Public Use
  Company Number: US-GLAXOSMITHKLINE-A0981714A

PATIENT
  Age: 56 Year
  Sex: Male

DRUGS (4)
  1. XANAX [Concomitant]
  2. MORPHINE SULFATE [Concomitant]
  3. HYCAMTIN [Suspect]
     Indication: SMALL CELL LUNG CANCER STAGE UNSPECIFIED
     Dosage: 7.44MG WEEKLY
     Route: 042
     Dates: start: 20120515, end: 20120522
  4. LORTAB [Concomitant]

REACTIONS (1)
  - DEATH [None]
